FAERS Safety Report 8295878-8 (Version None)
Quarter: 2012Q2

REPORT INFORMATION
  Report Type: 
  Country: None (occurrence: None)
  Receive Date: 20120418
  Receipt Date: 20120417
  Transmission Date: 20120825
  Serious: Yes (Hospitalization)
  Sender: FDA-Public Use
  Company Number: FR-ROCHE-729469

PATIENT
  Sex: Female
  Weight: 52 kg

DRUGS (43)
  1. PREDNISONE TAB [Suspect]
     Indication: PROPHYLAXIS AGAINST TRANSPLANT REJECTION
     Dosage: LAST DOSE PRIOR TO SAE: 8 SEP 2010
     Route: 048
  2. CIPROFLOXACIN HYDROCHLORIDE [Concomitant]
     Dates: start: 20100628, end: 20100718
  3. NOVORAPID [Concomitant]
     Route: 058
  4. AMIKACIN [Concomitant]
     Dates: start: 20110512, end: 20110513
  5. MYCOPHENOLATE MOFETIL (CELLCEPT) [Suspect]
     Indication: PROPHYLAXIS AGAINST TRANSPLANT REJECTION
     Route: 048
  6. VALGANCICLOVIR [Concomitant]
     Route: 048
  7. AMLODIPINE BESYLATE [Concomitant]
     Dosage: FREQUENCY REPORTED AS QD.
     Route: 048
  8. AMLODIPINE BESYLATE [Concomitant]
     Route: 048
  9. POTASSIUM CHLORIDE [Concomitant]
     Route: 048
     Dates: start: 20110503, end: 20110517
  10. PANTOPRAZOLE SODIUM [Concomitant]
     Dosage: REPORTED AS QD.
     Route: 048
  11. BICARBONATE DE SODIUM [Concomitant]
     Route: 048
  12. NOVORAPID [Concomitant]
     Dosage: TDD: 8+8+8 IU
     Route: 058
  13. NOVORAPID [Concomitant]
     Route: 058
     Dates: start: 20100721, end: 20101001
  14. DUPHALAC [Concomitant]
  15. MIRCERA [Concomitant]
     Route: 058
  16. PREDNISONE TAB [Suspect]
     Route: 048
  17. MAG 2 [Concomitant]
     Dosage: TDD: 2 DOSES
  18. INSULATARD NPH HUMAN [Concomitant]
     Dosage: TDD: 20+9 IU
     Dates: start: 20100703, end: 20100806
  19. EPREX [Concomitant]
     Route: 058
  20. ASPIRIN [Concomitant]
  21. OFLOXACIN [Concomitant]
  22. EVEROLIMUS [Suspect]
     Indication: PROPHYLAXIS AGAINST TRANSPLANT REJECTION
     Dosage: ROUTE REPORTED AS PER OS. LAST DOSE PRIOR TO SAE 23 SEP 2010.
     Route: 048
  23. LASIX [Concomitant]
  24. VALGANCICLOVIR [Concomitant]
     Dosage: TEMPORARILY DISCONTINUED FROM 28 JUN TO 05 JULY 2010
     Route: 048
     Dates: start: 20100521, end: 20100628
  25. PANTOPRAZOLE SODIUM [Concomitant]
     Route: 048
  26. BICARBONATE DE SODIUM [Concomitant]
     Route: 048
  27. INSULATARD NPH HUMAN [Concomitant]
     Route: 058
  28. PHOSPHONEUROS [Concomitant]
     Route: 048
  29. XYZAL [Concomitant]
     Route: 048
     Dates: start: 20100915, end: 20100929
  30. LEXOMIL [Concomitant]
     Route: 048
  31. NOVOMIX [Concomitant]
     Route: 058
     Dates: start: 20100811, end: 20100906
  32. DEBRIDAT [Concomitant]
  33. TAZOCILLINE [Concomitant]
     Dates: start: 20110512, end: 20110514
  34. TACROLIMUS [Suspect]
     Indication: PROPHYLAXIS AGAINST TRANSPLANT REJECTION
     Route: 048
  35. PRAVASTATIN [Concomitant]
     Dosage: REPORTED AS QD.
     Route: 048
  36. POTASSIUM CHLORIDE [Concomitant]
     Dosage: TDD: 6 DOSES
     Route: 048
  37. POTASSIUM CHLORIDE [Concomitant]
     Route: 048
     Dates: start: 20100628, end: 20100930
  38. NOVORAPID [Concomitant]
     Route: 058
  39. TAZOCILLINE [Concomitant]
     Dates: start: 20100628, end: 20100719
  40. LANTUS [Concomitant]
     Dosage: REPORTED AS QD.
     Route: 058
     Dates: start: 20100907, end: 20101001
  41. LEXOMIL [Concomitant]
     Route: 048
  42. POLYETHYLENE GLYCOL [Concomitant]
     Dosage: DRUG REPORTED AS PORLAX QD AS NEEDED.
     Route: 048
  43. POLYETHYLENE GLYCOL [Concomitant]
     Route: 048

REACTIONS (3)
  - ESCHERICHIA SEPSIS [None]
  - TRANSPLANT REJECTION [None]
  - KLEBSIELLA SEPSIS [None]
